FAERS Safety Report 7548800-3 (Version None)
Quarter: 2011Q2

REPORT INFORMATION
  Report Type: 
  Country: None (occurrence: None)
  Receive Date: 20110608
  Receipt Date: 20110519
  Transmission Date: 20111010
  Serious: Yes (Hospitalization, Other)
  Sender: FDA-Public Use
  Company Number: 2010SP062558

PATIENT
  Age: 30 Year
  Sex: Female
  Weight: 88.4514 kg

DRUGS (1)
  1. NUVARING [Suspect]
     Indication: CONTRACEPTION
     Dates: start: 20081201, end: 20081201

REACTIONS (15)
  - INJURY [None]
  - GESTATIONAL DIABETES [None]
  - MIGRAINE [None]
  - INSULIN-REQUIRING TYPE 2 DIABETES MELLITUS [None]
  - PULMONARY HYPERTENSION [None]
  - WEIGHT INCREASED [None]
  - HAEMOGLOBIN DECREASED [None]
  - COAGULOPATHY [None]
  - PLATELET COUNT INCREASED [None]
  - PULMONARY EMBOLISM [None]
  - HAEMATOCRIT DECREASED [None]
  - ARRHYTHMIA [None]
  - IRON DEFICIENCY ANAEMIA [None]
  - HYPERCHOLESTEROLAEMIA [None]
  - CALCULUS URINARY [None]
